FAERS Safety Report 20017885 (Version 1)
Quarter: 2021Q4

REPORT INFORMATION
  Report Type: Spontaneous
  Country: US (occurrence: US)
  Receive Date: 20211101
  Receipt Date: 20211101
  Transmission Date: 20220303
  Serious: No
  Sender: FDA-Public Use
  Company Number: US-SA-SAC20211026000873

PATIENT
  Age: 14 Year
  Sex: Female

DRUGS (6)
  1. DUPIXENT [Suspect]
     Active Substance: DUPILUMAB
     Indication: Dermatitis atopic
     Dosage: 300 MG/2ML, QOW
     Route: 058
     Dates: start: 20210529
  2. FLOVENT [Concomitant]
     Active Substance: FLUTICASONE PROPIONATE
  3. FLUOCINONIDE [Concomitant]
     Active Substance: FLUOCINONIDE
  4. LORATADINE [Concomitant]
     Active Substance: LORATADINE
  5. MONTELUKAST [Concomitant]
     Active Substance: MONTELUKAST SODIUM
     Indication: Asthma
  6. PROAIR HFA [Concomitant]
     Active Substance: ALBUTEROL SULFATE
     Indication: Asthma

REACTIONS (1)
  - Asthma [Not Recovered/Not Resolved]

NARRATIVE: CASE EVENT DATE: 20210901
